FAERS Safety Report 20020963 (Version 1)
Quarter: 2021Q4

REPORT INFORMATION
  Report Type: Spontaneous
  Country: US (occurrence: US)
  Receive Date: 20211101
  Receipt Date: 20211101
  Transmission Date: 20220303
  Serious: No
  Sender: FDA-Public Use
  Company Number: US-NOVARTISTESTPH-NVSC2021US248663

PATIENT
  Age: 36 Year
  Sex: Female

DRUGS (1)
  1. MAYZENT [Suspect]
     Active Substance: SIPONIMOD
     Indication: Multiple sclerosis
     Dosage: UNK (BEEN ON THE DRUG MAYZENT FOR 6 WEEKS)
     Route: 065

REACTIONS (4)
  - Head discomfort [Unknown]
  - Sensation of foreign body [Unknown]
  - Anxiety [Unknown]
  - Dry throat [Unknown]

NARRATIVE: CASE EVENT DATE: 20211028
